FAERS Safety Report 10068608 (Version 4)
Quarter: 2014Q3

REPORT INFORMATION
  Report Type: Report from Study
  Country: US (occurrence: US)
  Receive Date: 20140409
  Receipt Date: 20140908
  Transmission Date: 20150326
  Serious: Yes (Hospitalization)
  Sender: FDA-Public Use
  Company Number: PHEH2014US006694

PATIENT
  Age: 32 Year
  Sex: Female

DRUGS (3)
  1. MYFORTIC [Suspect]
     Active Substance: MYCOPHENOLATE SODIUM
     Dosage: 1080 MG, (360 MG X 3, BID)
     Route: 048
  2. MYFORTIC [Suspect]
     Active Substance: MYCOPHENOLATE SODIUM
     Dosage: 720 MG, (180 MG X 4, BID)
     Route: 048
     Dates: start: 2012
  3. MYFORTIC [Suspect]
     Active Substance: MYCOPHENOLATE SODIUM
     Dosage: 4 TABLETS, TWICE DAILY
     Route: 048

REACTIONS (6)
  - Blindness [Recovering/Resolving]
  - Diarrhoea [Not Recovered/Not Resolved]
  - Dehydration [Unknown]
  - Neuromyelitis optica [Recovering/Resolving]
  - Disease recurrence [Unknown]
  - Colour blindness [Not Recovered/Not Resolved]

NARRATIVE: CASE EVENT DATE: 20140320
